FAERS Safety Report 7147736-X (Version None)
Quarter: 2010Q4

REPORT INFORMATION
  Report Type: 
  Country: None (occurrence: None)
  Receive Date: 20101209
  Receipt Date: 20101130
  Transmission Date: 20110411
  Serious: No
  Sender: FDA-Public Use
  Company Number: US-BIOGENIDEC-2010BI042623

PATIENT
  Sex: Male

DRUGS (2)
  1. TYSABRI [Suspect]
     Indication: MULTIPLE SCLEROSIS
     Route: 042
     Dates: start: 20101025
  2. TYSABRI [Suspect]
     Route: 042
     Dates: start: 20080909, end: 20100713

REACTIONS (3)
  - FATIGUE [None]
  - MUSCLE SPASTICITY [None]
  - MUSCULAR WEAKNESS [None]
